FAERS Safety Report 4895644-7 (Version None)
Quarter: 2005Q4

REPORT INFORMATION
  Report Type: 
  Country: None (occurrence: None)
  Receive Date: 20051215
  Receipt Date: 20050629
  Transmission Date: 20060501
  Serious: Yes (Hospitalization)
  Sender: FDA-Public Use
  Company Number: 2005071518

PATIENT
  Age: 65 Year
  Sex: Female
  Weight: 99.7913 kg

DRUGS (14)
  1. BEXTRA [Suspect]
     Indication: SPINAL COLUMN STENOSIS
     Dosage: 10 MG (10 MG, 1 IN 1 D), ORAL
     Route: 048
     Dates: start: 20041109, end: 20050101
  2. CORTICOSTEROIDS (CORTICOSTEROIDS) [Suspect]
     Indication: BACK PAIN
  3. ACEBUTOLOL [Concomitant]
  4. COZAAR [Concomitant]
  5. NEXIUM [Concomitant]
  6. SYNTHROID [Concomitant]
  7. CLARINEX [Concomitant]
  8. HYDROCHLOROTHIAZIDE [Concomitant]
  9. ANASTROZOLE (ANASTROZOLE) [Concomitant]
  10. SECTRAL [Concomitant]
  11. FLONASE (FUTICASONE PROPIONATE) [Concomitant]
  12. EFFEXOR [Concomitant]
  13. PSYLLIUM HYDROPHILIC MUCILLOID (PSYLLIUM HYDROPHILIC MUCILLOID) [Concomitant]
  14. ACETAMINOPHEN [Concomitant]

REACTIONS (3)
  - GASTROINTESTINAL HAEMORRHAGE [None]
  - STOMACH DISCOMFORT [None]
  - WEIGHT INCREASED [None]
